FAERS Safety Report 8729670 (Version 2)
Quarter: 2015Q2

REPORT INFORMATION
  Report Type: Report from Study
  Country: US (occurrence: US)
  Receive Date: 20120817
  Receipt Date: 20150625
  Transmission Date: 20150821
  Serious: Yes (Other)
  Sender: FDA-Public Use
  Company Number: US-ROCHE-1101374

PATIENT
  Age: 60 Year
  Sex: Female

DRUGS (9)
  1. ASPIRIN. [Concomitant]
     Active Substance: ASPIRIN
     Route: 048
  2. TRIDIL [Concomitant]
     Active Substance: NITROGLYCERIN
     Dosage: 50 MG IN 250 ML DSW-DISTILLED WATER, 33 MCG/MIN
     Route: 065
  3. NITROSTAT [Concomitant]
     Active Substance: NITROGLYCERIN
     Indication: CHEST PAIN
     Route: 060
  4. PROCARDIA (UNITED STATES) [Concomitant]
     Route: 060
  5. ACTIVASE [Suspect]
     Active Substance: ALTEPLASE
     Indication: ACUTE MYOCARDIAL INFARCTION
     Dosage: BOLUS
     Route: 040
  6. LIDOCAINE. [Concomitant]
     Active Substance: LIDOCAINE
     Dosage: 2 MG/MIN
     Route: 040
  7. ACTIVASE [Suspect]
     Active Substance: ALTEPLASE
     Dosage: OVER 1 HOUR
     Route: 042
  8. HEPARIN [Concomitant]
     Active Substance: HEPARIN SODIUM
     Dosage: 1000 UNITS/HR
     Route: 065
  9. ACTIVASE [Suspect]
     Active Substance: ALTEPLASE
     Dosage: OVER 1/2 HOUR
     Route: 042

REACTIONS (1)
  - Bradyarrhythmia [Unknown]
